FAERS Safety Report 24798344 (Version 3)
Quarter: 2025Q2

REPORT INFORMATION
  Report Type: Spontaneous
  Country: CA (occurrence: CA)
  Receive Date: 20250102
  Receipt Date: 20250624
  Transmission Date: 20250716
  Serious: Yes (Death, Other)
  Sender: Haleon PLC
  Company Number: CA-SANDOZ-SDZ2023CA076082

PATIENT
  Sex: Female

DRUGS (223)
  1. CALCIUM CARBONATE [Suspect]
     Active Substance: CALCIUM CARBONATE
     Indication: Product used for unknown indication
     Route: 016
  2. HYDROXYCHLOROQUINE SULFATE [Suspect]
     Active Substance: HYDROXYCHLOROQUINE SULFATE
     Indication: Product used for unknown indication
     Route: 048
  3. HYDROXYCHLOROQUINE SULFATE [Suspect]
     Active Substance: HYDROXYCHLOROQUINE SULFATE
     Route: 048
  4. HYDROXYCHLOROQUINE SULFATE [Suspect]
     Active Substance: HYDROXYCHLOROQUINE SULFATE
     Route: 048
  5. HYDROXYCHLOROQUINE SULFATE [Suspect]
     Active Substance: HYDROXYCHLOROQUINE SULFATE
     Route: 065
  6. HYDROXYCHLOROQUINE SULFATE [Suspect]
     Active Substance: HYDROXYCHLOROQUINE SULFATE
     Route: 065
  7. HYDROXYCHLOROQUINE SULFATE [Suspect]
     Active Substance: HYDROXYCHLOROQUINE SULFATE
     Route: 050
  8. HYDROXYCHLOROQUINE SULFATE [Suspect]
     Active Substance: HYDROXYCHLOROQUINE SULFATE
     Route: 048
  9. HYDROXYCHLOROQUINE SULFATE [Suspect]
     Active Substance: HYDROXYCHLOROQUINE SULFATE
     Route: 049
  10. DICLOFENAC [Suspect]
     Active Substance: DICLOFENAC
     Indication: Product used for unknown indication
     Route: 065
  11. DICLOFENAC [Suspect]
     Active Substance: DICLOFENAC
     Route: 065
  12. DOXYCYCLINE HYCLATE [Suspect]
     Active Substance: DOXYCYCLINE HYCLATE
     Indication: Product used for unknown indication
     Route: 065
  13. DICLOFENAC POTASSIUM [Suspect]
     Active Substance: DICLOFENAC POTASSIUM
     Indication: Product used for unknown indication
  14. DICLOFENAC POTASSIUM [Suspect]
     Active Substance: DICLOFENAC POTASSIUM
  15. METHYLPREDNISOLONE SODIUM SUCCINATE [Suspect]
     Active Substance: METHYLPREDNISOLONE SODIUM SUCCINATE
     Indication: Product used for unknown indication
     Route: 048
  16. CERTOLIZUMAB PEGOL [Suspect]
     Active Substance: CERTOLIZUMAB PEGOL
     Indication: Product used for unknown indication
     Route: 058
  17. CALCIUM GLUBIONATE [Suspect]
     Active Substance: CALCIUM GLUBIONATE
     Indication: Product used for unknown indication
     Route: 065
  18. OTEZLA [Suspect]
     Active Substance: APREMILAST
     Indication: Product used for unknown indication
     Route: 048
  19. OTEZLA [Suspect]
     Active Substance: APREMILAST
     Route: 048
  20. OTEZLA [Suspect]
     Active Substance: APREMILAST
     Route: 065
  21. OTEZLA [Suspect]
     Active Substance: APREMILAST
     Route: 065
  22. OTEZLA [Suspect]
     Active Substance: APREMILAST
     Route: 065
  23. DICLOFENAC SODIUM [Suspect]
     Active Substance: DICLOFENAC SODIUM
     Indication: Product used for unknown indication
  24. DICLOFENAC SODIUM [Suspect]
     Active Substance: DICLOFENAC SODIUM
  25. DICLOFENAC SODIUM [Suspect]
     Active Substance: DICLOFENAC SODIUM
  26. DICLOFENAC SODIUM [Suspect]
     Active Substance: DICLOFENAC SODIUM
  27. DICLOFENAC SODIUM [Suspect]
     Active Substance: DICLOFENAC SODIUM
     Route: 058
  28. DICLOFENAC SODIUM [Suspect]
     Active Substance: DICLOFENAC SODIUM
  29. DILTIAZEM HYDROCHLORIDE [Suspect]
     Active Substance: DILTIAZEM HYDROCHLORIDE
     Indication: Product used for unknown indication
  30. DILTIAZEM HYDROCHLORIDE [Suspect]
     Active Substance: DILTIAZEM HYDROCHLORIDE
  31. ACETAMINOPHEN\OXYCODONE HYDROCHLORIDE [Suspect]
     Active Substance: ACETAMINOPHEN\OXYCODONE HYDROCHLORIDE
     Indication: Product used for unknown indication
  32. ACETAMINOPHEN\OXYCODONE HYDROCHLORIDE [Suspect]
     Active Substance: ACETAMINOPHEN\OXYCODONE HYDROCHLORIDE
  33. ADALIMUMAB [Suspect]
     Active Substance: ADALIMUMAB
     Indication: Product used for unknown indication
     Route: 048
  34. ADALIMUMAB [Suspect]
     Active Substance: ADALIMUMAB
  35. ADALIMUMAB [Suspect]
     Active Substance: ADALIMUMAB
     Route: 058
  36. ADALIMUMAB [Suspect]
     Active Substance: ADALIMUMAB
  37. ADALIMUMAB [Suspect]
     Active Substance: ADALIMUMAB
     Route: 058
  38. HYDROCORTISONE SODIUM SUCCINATE [Suspect]
     Active Substance: HYDROCORTISONE SODIUM SUCCINATE
     Indication: Product used for unknown indication
     Route: 048
  39. HYDROCORTISONE SODIUM SUCCINATE [Suspect]
     Active Substance: HYDROCORTISONE SODIUM SUCCINATE
     Route: 049
  40. ORENCIA [Suspect]
     Active Substance: ABATACEPT
     Indication: Product used for unknown indication
  41. ORENCIA [Suspect]
     Active Substance: ABATACEPT
  42. ORENCIA [Suspect]
     Active Substance: ABATACEPT
     Route: 053
  43. ORENCIA [Suspect]
     Active Substance: ABATACEPT
  44. ORENCIA [Suspect]
     Active Substance: ABATACEPT
     Route: 058
  45. ORENCIA [Suspect]
     Active Substance: ABATACEPT
  46. ORENCIA [Suspect]
     Active Substance: ABATACEPT
     Route: 058
  47. ORENCIA [Suspect]
     Active Substance: ABATACEPT
  48. ORENCIA [Suspect]
     Active Substance: ABATACEPT
     Route: 058
  49. ORENCIA [Suspect]
     Active Substance: ABATACEPT
  50. ORENCIA [Suspect]
     Active Substance: ABATACEPT
     Route: 058
  51. USTEKINUMAB [Suspect]
     Active Substance: USTEKINUMAB
     Indication: Product used for unknown indication
     Route: 042
  52. TOCILIZUMAB [Suspect]
     Active Substance: TOCILIZUMAB
     Indication: Product used for unknown indication
     Route: 016
  53. TOCILIZUMAB [Suspect]
     Active Substance: TOCILIZUMAB
     Route: 058
  54. TOCILIZUMAB [Suspect]
     Active Substance: TOCILIZUMAB
     Route: 042
  55. TOCILIZUMAB [Suspect]
     Active Substance: TOCILIZUMAB
     Route: 042
  56. TOCILIZUMAB [Suspect]
     Active Substance: TOCILIZUMAB
     Route: 058
  57. TOCILIZUMAB [Suspect]
     Active Substance: TOCILIZUMAB
     Route: 065
  58. TOCILIZUMAB [Suspect]
     Active Substance: TOCILIZUMAB
     Route: 048
  59. TOCILIZUMAB [Suspect]
     Active Substance: TOCILIZUMAB
     Route: 042
  60. TOCILIZUMAB [Suspect]
     Active Substance: TOCILIZUMAB
     Route: 016
  61. TOCILIZUMAB [Suspect]
     Active Substance: TOCILIZUMAB
     Route: 058
  62. TOCILIZUMAB [Suspect]
     Active Substance: TOCILIZUMAB
     Route: 042
  63. TOCILIZUMAB [Suspect]
     Active Substance: TOCILIZUMAB
     Route: 058
  64. TOCILIZUMAB [Suspect]
     Active Substance: TOCILIZUMAB
     Route: 042
  65. CIMZIA [Suspect]
     Active Substance: CERTOLIZUMAB PEGOL
     Indication: Product used for unknown indication
     Route: 058
  66. CIMZIA [Suspect]
     Active Substance: CERTOLIZUMAB PEGOL
     Route: 058
  67. CIMZIA [Suspect]
     Active Substance: CERTOLIZUMAB PEGOL
     Route: 058
  68. MYCOPHENOLATE MOFETIL [Suspect]
     Active Substance: MYCOPHENOLATE MOFETIL
     Indication: Product used for unknown indication
  69. SULFASALAZINE [Suspect]
     Active Substance: SULFASALAZINE
     Indication: Product used for unknown indication
     Route: 058
  70. SULFASALAZINE [Suspect]
     Active Substance: SULFASALAZINE
     Route: 048
  71. SULFASALAZINE [Suspect]
     Active Substance: SULFASALAZINE
     Route: 058
  72. SULFASALAZINE [Suspect]
     Active Substance: SULFASALAZINE
     Route: 058
  73. SULFASALAZINE [Suspect]
     Active Substance: SULFASALAZINE
     Route: 058
  74. SULFASALAZINE [Suspect]
     Active Substance: SULFASALAZINE
     Route: 058
  75. SULFASALAZINE [Suspect]
     Active Substance: SULFASALAZINE
     Route: 058
  76. GRAMICIDIN [Suspect]
     Active Substance: GRAMICIDIN
     Indication: Product used for unknown indication
     Route: 065
  77. HYDROCORTISONE ACETATE [Suspect]
     Active Substance: HYDROCORTISONE ACETATE
     Indication: Product used for unknown indication
     Route: 058
  78. HYDROCORTISONE ACETATE [Suspect]
     Active Substance: HYDROCORTISONE ACETATE
     Route: 003
  79. HYDROCORTISONE ACETATE [Suspect]
     Active Substance: HYDROCORTISONE ACETATE
     Route: 003
  80. HYDROCORTISONE ACETATE [Suspect]
     Active Substance: HYDROCORTISONE ACETATE
     Route: 048
  81. ALENDRONATE SODIUM [Suspect]
     Active Substance: ALENDRONATE SODIUM
     Indication: Product used for unknown indication
     Route: 065
  82. ALENDRONATE SODIUM [Suspect]
     Active Substance: ALENDRONATE SODIUM
     Route: 048
  83. ALENDRONATE SODIUM [Suspect]
     Active Substance: ALENDRONATE SODIUM
     Route: 016
  84. ALENDRONATE SODIUM [Suspect]
     Active Substance: ALENDRONATE SODIUM
     Route: 016
  85. PHTHALYLSULFATHIAZOLE [Suspect]
     Active Substance: PHTHALYLSULFATHIAZOLE
     Indication: Product used for unknown indication
     Route: 048
  86. PHTHALYLSULFATHIAZOLE [Suspect]
     Active Substance: PHTHALYLSULFATHIAZOLE
     Route: 048
  87. PHTHALYLSULFATHIAZOLE [Suspect]
     Active Substance: PHTHALYLSULFATHIAZOLE
     Route: 048
  88. PHTHALYLSULFATHIAZOLE [Suspect]
     Active Substance: PHTHALYLSULFATHIAZOLE
     Route: 048
  89. PHTHALYLSULFATHIAZOLE [Suspect]
     Active Substance: PHTHALYLSULFATHIAZOLE
     Route: 048
  90. PHTHALYLSULFATHIAZOLE [Suspect]
     Active Substance: PHTHALYLSULFATHIAZOLE
     Route: 016
  91. PHTHALYLSULFATHIAZOLE [Suspect]
     Active Substance: PHTHALYLSULFATHIAZOLE
     Route: 050
  92. PHTHALYLSULFATHIAZOLE [Suspect]
     Active Substance: PHTHALYLSULFATHIAZOLE
     Route: 058
  93. BENZOYLPAS CALCIUM ANHYDROUS [Suspect]
     Active Substance: BENZOYLPAS CALCIUM ANHYDROUS
     Indication: Product used for unknown indication
  94. PREDNISONE [Suspect]
     Active Substance: PREDNISONE
     Indication: Product used for unknown indication
     Route: 048
  95. PREDNISONE [Suspect]
     Active Substance: PREDNISONE
  96. PREDNISONE [Suspect]
     Active Substance: PREDNISONE
     Route: 048
  97. PREDNISONE [Suspect]
     Active Substance: PREDNISONE
     Route: 048
  98. PREDNISONE [Suspect]
     Active Substance: PREDNISONE
     Route: 048
  99. PREDNISONE [Suspect]
     Active Substance: PREDNISONE
     Route: 048
  100. PREDNISONE [Suspect]
     Active Substance: PREDNISONE
  101. BENZOYLPAS CALCIUM ANHYDROUS [Suspect]
     Active Substance: BENZOYLPAS CALCIUM ANHYDROUS
     Indication: Product used for unknown indication
     Route: 065
  102. METHOTREXATE [Suspect]
     Active Substance: METHOTREXATE
     Indication: Product used for unknown indication
     Route: 058
  103. METHOTREXATE [Suspect]
     Active Substance: METHOTREXATE
     Route: 048
  104. METHOTREXATE [Suspect]
     Active Substance: METHOTREXATE
     Route: 013
  105. METHOTREXATE [Suspect]
     Active Substance: METHOTREXATE
     Route: 048
  106. METHOTREXATE [Suspect]
     Active Substance: METHOTREXATE
     Route: 048
  107. METHOTREXATE [Suspect]
     Active Substance: METHOTREXATE
     Route: 016
  108. METHOTREXATE [Suspect]
     Active Substance: METHOTREXATE
     Route: 048
  109. METHOTREXATE [Suspect]
     Active Substance: METHOTREXATE
     Route: 048
  110. METHOTREXATE [Suspect]
     Active Substance: METHOTREXATE
     Route: 065
  111. METHOTREXATE [Suspect]
     Active Substance: METHOTREXATE
     Route: 065
  112. METHOTREXATE [Suspect]
     Active Substance: METHOTREXATE
     Route: 048
  113. METHOTREXATE [Suspect]
     Active Substance: METHOTREXATE
     Route: 058
  114. METHOTREXATE [Suspect]
     Active Substance: METHOTREXATE
     Route: 048
  115. METHOTREXATE [Suspect]
     Active Substance: METHOTREXATE
     Route: 013
  116. METHOTREXATE [Suspect]
     Active Substance: METHOTREXATE
     Route: 048
  117. ERELZI [Suspect]
     Active Substance: ETANERCEPT-SZZS
     Indication: Product used for unknown indication
     Route: 058
  118. ERELZI [Suspect]
     Active Substance: ETANERCEPT-SZZS
     Route: 058
  119. CETIRIZINE HYDROCHLORIDE [Suspect]
     Active Substance: CETIRIZINE HYDROCHLORIDE
     Indication: Product used for unknown indication
     Route: 065
  120. CETIRIZINE HYDROCHLORIDE [Suspect]
     Active Substance: CETIRIZINE HYDROCHLORIDE
     Route: 048
  121. CETIRIZINE HYDROCHLORIDE [Suspect]
     Active Substance: CETIRIZINE HYDROCHLORIDE
     Route: 065
  122. CETIRIZINE HYDROCHLORIDE [Suspect]
     Active Substance: CETIRIZINE HYDROCHLORIDE
     Route: 048
  123. TRIAMCINOLONE ACETONIDE [Suspect]
     Active Substance: TRIAMCINOLONE ACETONIDE
     Indication: Product used for unknown indication
     Route: 014
  124. DICLOFENAC DIETHYLAMINE [Suspect]
     Active Substance: DICLOFENAC DIETHYLAMINE
     Indication: Product used for unknown indication
     Route: 065
  125. DICLOFENAC DIETHYLAMINE [Suspect]
     Active Substance: DICLOFENAC DIETHYLAMINE
     Route: 065
  126. DICLOFENAC DIETHYLAMINE [Suspect]
     Active Substance: DICLOFENAC DIETHYLAMINE
     Route: 065
  127. CHLORHEXIDINE GLUCONATE [Suspect]
     Active Substance: CHLORHEXIDINE GLUCONATE
     Indication: Product used for unknown indication
     Route: 048
  128. CHLORHEXIDINE GLUCONATE [Suspect]
     Active Substance: CHLORHEXIDINE GLUCONATE
     Route: 065
  129. CALCIUM CITRATE [Suspect]
     Active Substance: CALCIUM CITRATE
     Indication: Product used for unknown indication
  130. HUMIRA [Suspect]
     Active Substance: ADALIMUMAB
     Indication: Product used for unknown indication
     Route: 058
  131. HUMIRA [Suspect]
     Active Substance: ADALIMUMAB
     Route: 058
  132. HUMIRA [Suspect]
     Active Substance: ADALIMUMAB
     Route: 058
  133. HUMIRA [Suspect]
     Active Substance: ADALIMUMAB
     Route: 058
  134. CORTISONE [Suspect]
     Active Substance: CORTISONE
     Indication: Product used for unknown indication
     Route: 058
  135. PARA-AMINOSALICYLIC ACID [Suspect]
     Active Substance: AMINOSALICYLIC ACID
     Indication: Product used for unknown indication
     Route: 065
  136. APREMILAST [Suspect]
     Active Substance: APREMILAST
     Indication: Product used for unknown indication
     Route: 048
  137. APREMILAST [Suspect]
     Active Substance: APREMILAST
     Route: 065
  138. APREMILAST [Suspect]
     Active Substance: APREMILAST
     Route: 048
  139. APREMILAST [Suspect]
     Active Substance: APREMILAST
     Route: 065
  140. APREMILAST [Suspect]
     Active Substance: APREMILAST
     Route: 065
  141. APREMILAST [Suspect]
     Active Substance: APREMILAST
     Route: 065
  142. APREMILAST [Suspect]
     Active Substance: APREMILAST
  143. SULFISOMIDINE [Suspect]
     Active Substance: SULFISOMIDINE
     Indication: Product used for unknown indication
  144. PREGABALIN [Suspect]
     Active Substance: PREGABALIN
     Indication: Product used for unknown indication
     Route: 065
  145. OXYCODONE [Suspect]
     Active Substance: OXYCODONE
     Indication: Product used for unknown indication
  146. CHLORHEXIDINE [Suspect]
     Active Substance: CHLORHEXIDINE
     Indication: Product used for unknown indication
     Route: 048
  147. CHLORHEXIDINE [Suspect]
     Active Substance: CHLORHEXIDINE
     Route: 065
  148. CHLORHEXIDINE [Suspect]
     Active Substance: CHLORHEXIDINE
     Route: 002
  149. ENTYVIO [Suspect]
     Active Substance: VEDOLIZUMAB
     Indication: Product used for unknown indication
  150. CALTRATE [Suspect]
     Active Substance: CALCIUM CARBONATE
     Indication: Product used for unknown indication
     Route: 065
  151. CALTRATE [Suspect]
     Active Substance: CALCIUM CARBONATE
     Route: 058
  152. CALTRATE [Suspect]
     Active Substance: CALCIUM CARBONATE
     Route: 016
  153. TYROTHRICIN [Suspect]
     Active Substance: TYROTHRICIN
     Indication: Product used for unknown indication
     Route: 048
  154. TYROTHRICIN [Suspect]
     Active Substance: TYROTHRICIN
     Route: 048
  155. ROBAXACET [Suspect]
     Active Substance: ACETAMINOPHEN\METHOCARBAMOL
     Indication: Product used for unknown indication
     Route: 065
  156. ROBAXACET [Suspect]
     Active Substance: ACETAMINOPHEN\METHOCARBAMOL
     Route: 065
  157. MORPHINE SULFATE [Suspect]
     Active Substance: MORPHINE SULFATE
     Indication: Product used for unknown indication
     Route: 065
  158. ENBREL [Suspect]
     Active Substance: ETANERCEPT
     Indication: Product used for unknown indication
     Route: 058
  159. ENBREL [Suspect]
     Active Substance: ETANERCEPT
     Route: 058
  160. ENBREL [Suspect]
     Active Substance: ETANERCEPT
     Route: 058
  161. ENBREL [Suspect]
     Active Substance: ETANERCEPT
     Route: 058
  162. AZATHIOPRINE [Suspect]
     Active Substance: AZATHIOPRINE
     Indication: Product used for unknown indication
  163. DESOXIMETASONE [Suspect]
     Active Substance: DESOXIMETASONE
     Indication: Product used for unknown indication
     Route: 003
  164. DESOXIMETASONE [Suspect]
     Active Substance: DESOXIMETASONE
     Route: 048
  165. DESOXIMETASONE [Suspect]
     Active Substance: DESOXIMETASONE
     Route: 003
  166. THERAFLU EXPRESSMAX NIGHTTIME SEVERE COLD AND COUGH [Suspect]
     Active Substance: ACETAMINOPHEN\DIPHENHYDRAMINE HYDROCHLORIDE\PHENYLEPHRINE HYDROCHLORIDE
     Indication: Product used for unknown indication
     Route: 065
  167. CELECOXIB [Suspect]
     Active Substance: CELECOXIB
     Indication: Product used for unknown indication
     Route: 065
  168. CELECOXIB [Suspect]
     Active Substance: CELECOXIB
     Route: 058
  169. CELECOXIB [Suspect]
     Active Substance: CELECOXIB
     Route: 048
  170. CELECOXIB [Suspect]
     Active Substance: CELECOXIB
     Route: 065
  171. NITROFURAZONE [Suspect]
     Active Substance: NITROFURAZONE
     Indication: Product used for unknown indication
     Route: 048
  172. NITROFURAZONE [Suspect]
     Active Substance: NITROFURAZONE
     Route: 048
  173. BIOFLAVONOIDS [Suspect]
     Active Substance: BIOFLAVONOIDS
     Indication: Product used for unknown indication
     Route: 065
  174. ASPIRIN [Suspect]
     Active Substance: ASPIRIN
     Indication: Product used for unknown indication
     Route: 065
  175. MESALAMINE [Suspect]
     Active Substance: MESALAMINE
     Indication: Product used for unknown indication
     Route: 065
  176. POLIDENT PRO PARTIAL [Suspect]
     Active Substance: SODIUM FLUORIDE
     Indication: Product used for unknown indication
  177. PANTOPRAZOLE SODIUM ANHYDROUS [Suspect]
     Active Substance: PANTOPRAZOLE SODIUM ANHYDROUS
     Indication: Product used for unknown indication
     Route: 016
  178. PANTOPRAZOLE SODIUM ANHYDROUS [Suspect]
     Active Substance: PANTOPRAZOLE SODIUM ANHYDROUS
     Route: 016
  179. HYDROXYCHLOROQUINE [Suspect]
     Active Substance: HYDROXYCHLOROQUINE
     Indication: Product used for unknown indication
     Route: 048
  180. HYDROXYCHLOROQUINE [Suspect]
     Active Substance: HYDROXYCHLOROQUINE
     Route: 058
  181. HYDROXYCHLOROQUINE [Suspect]
     Active Substance: HYDROXYCHLOROQUINE
     Route: 048
  182. HYDROXYCHLOROQUINE [Suspect]
     Active Substance: HYDROXYCHLOROQUINE
     Route: 048
  183. CALTRATE [Suspect]
     Active Substance: CALCIUM CARBONATE
     Indication: Product used for unknown indication
     Route: 065
  184. TRAMADOL HYDROCHLORIDE [Suspect]
     Active Substance: TRAMADOL HYDROCHLORIDE
     Indication: Product used for unknown indication
     Route: 065
  185. FOLIC ACID [Suspect]
     Active Substance: FOLIC ACID
     Indication: Product used for unknown indication
     Route: 048
  186. FOLIC ACID [Suspect]
     Active Substance: FOLIC ACID
     Route: 065
  187. FOLIC ACID [Suspect]
     Active Substance: FOLIC ACID
     Route: 065
  188. FOLIC ACID [Suspect]
     Active Substance: FOLIC ACID
     Route: 048
  189. FOLIC ACID [Suspect]
     Active Substance: FOLIC ACID
     Route: 065
  190. FOLIC ACID [Suspect]
     Active Substance: FOLIC ACID
     Route: 048
  191. FOLIC ACID [Suspect]
     Active Substance: FOLIC ACID
     Route: 065
  192. FOLIC ACID [Suspect]
     Active Substance: FOLIC ACID
     Route: 049
  193. FOLIC ACID [Suspect]
     Active Substance: FOLIC ACID
     Route: 065
  194. FOLIC ACID [Suspect]
     Active Substance: FOLIC ACID
     Route: 065
  195. PANADOL [Suspect]
     Active Substance: ACETAMINOPHEN
     Indication: Product used for unknown indication
     Route: 065
  196. PANADOL [Suspect]
     Active Substance: ACETAMINOPHEN
     Route: 065
  197. QUETIAPINE FUMARATE [Suspect]
     Active Substance: QUETIAPINE FUMARATE
     Indication: Product used for unknown indication
     Route: 065
  198. OXYCODONE TEREPHTHALATE [Suspect]
     Active Substance: OXYCODONE TEREPHTHALATE
     Indication: Product used for unknown indication
  199. TOFACITINIB CITRATE [Suspect]
     Active Substance: TOFACITINIB CITRATE
     Indication: Product used for unknown indication
     Route: 065
  200. THYMOL [Suspect]
     Active Substance: THYMOL
     Indication: Product used for unknown indication
     Route: 048
  201. THYMOL [Suspect]
     Active Substance: THYMOL
     Route: 048
  202. POLYSPORIN [Suspect]
     Active Substance: BACITRACIN ZINC\POLYMYXIN B SULFATE
     Indication: Product used for unknown indication
     Route: 065
  203. NAPROXEN SODIUM [Suspect]
     Active Substance: NAPROXEN SODIUM
     Indication: Product used for unknown indication
  204. NAPROXEN SODIUM [Suspect]
     Active Substance: NAPROXEN SODIUM
  205. XELJANZ [Suspect]
     Active Substance: TOFACITINIB CITRATE
     Indication: Product used for unknown indication
  206. XELJANZ [Suspect]
     Active Substance: TOFACITINIB CITRATE
     Route: 048
  207. FRAMYCETIN SULFATE [Suspect]
     Active Substance: FRAMYCETIN SULFATE
     Indication: Product used for unknown indication
     Route: 065
  208. GOLIMUMAB [Suspect]
     Active Substance: GOLIMUMAB
     Indication: Product used for unknown indication
     Route: 065
  209. LYRICA [Suspect]
     Active Substance: PREGABALIN
     Indication: Product used for unknown indication
  210. CLONIDINE HYDROCHLORIDE [Suspect]
     Active Substance: CLONIDINE HYDROCHLORIDE
     Indication: Product used for unknown indication
  211. INFLIXIMAB [Suspect]
     Active Substance: INFLIXIMAB
     Indication: Product used for unknown indication
  212. INFLIXIMAB [Suspect]
     Active Substance: INFLIXIMAB
  213. ISOPROPYL ALCOHOL [Suspect]
     Active Substance: ISOPROPYL ALCOHOL
     Indication: Product used for unknown indication
     Route: 048
  214. CORTISONE ACETATE [Suspect]
     Active Substance: CORTISONE ACETATE
     Indication: Product used for unknown indication
     Route: 048
  215. CORTISONE ACETATE [Suspect]
     Active Substance: CORTISONE ACETATE
     Route: 003
  216. CORTISONE ACETATE [Suspect]
     Active Substance: CORTISONE ACETATE
     Route: 003
  217. TRICLOSAN [Suspect]
     Active Substance: TRICLOSAN
     Indication: Product used for unknown indication
  218. SULFAMETHOXAZOLE\TRIMETHOPRIM [Suspect]
     Active Substance: SULFAMETHOXAZOLE\TRIMETHOPRIM
     Indication: Product used for unknown indication
     Route: 067
  219. SULFAMETHOXAZOLE\TRIMETHOPRIM [Suspect]
     Active Substance: SULFAMETHOXAZOLE\TRIMETHOPRIM
     Route: 067
  220. PSEUDOEPHEDRINE HYDROCHLORIDE [Suspect]
     Active Substance: PSEUDOEPHEDRINE HYDROCHLORIDE
     Indication: Product used for unknown indication
     Route: 065
  221. SALICYLIC ACID [Suspect]
     Active Substance: SALICYLIC ACID
     Indication: Product used for unknown indication
     Route: 065
  222. TUMS [Suspect]
     Active Substance: CALCIUM CARBONATE
     Indication: Product used for unknown indication
     Route: 016
  223. ABATACEPT [Suspect]
     Active Substance: ABATACEPT
     Indication: Product used for unknown indication
     Route: 042

REACTIONS (129)
  - Pulmonary fibrosis [Fatal]
  - Urticaria [Fatal]
  - Grip strength decreased [Fatal]
  - Abdominal discomfort [Fatal]
  - Depression [Fatal]
  - Synovitis [Fatal]
  - Condition aggravated [Fatal]
  - Autoimmune disorder [Fatal]
  - Swollen joint count increased [Fatal]
  - Psoriatic arthropathy [Fatal]
  - Delirium [Fatal]
  - Pyrexia [Fatal]
  - Impaired healing [Fatal]
  - Anti-cyclic citrullinated peptide antibody positive [Fatal]
  - Pneumonia [Fatal]
  - Pemphigus [Fatal]
  - Arthropathy [Fatal]
  - Peripheral swelling [Fatal]
  - Osteoporosis [Fatal]
  - Loss of personal independence in daily activities [Fatal]
  - Hypersensitivity [Fatal]
  - Visual impairment [Fatal]
  - Liver function test increased [Fatal]
  - Red blood cell sedimentation rate increased [Fatal]
  - Foot deformity [Fatal]
  - Rheumatoid factor positive [Fatal]
  - Pruritus [Fatal]
  - Alopecia [Fatal]
  - Liver injury [Fatal]
  - Lower limb fracture [Fatal]
  - Walking aid user [Fatal]
  - Discomfort [Fatal]
  - Upper respiratory tract infection [Fatal]
  - Injury [Fatal]
  - Dyspnoea [Fatal]
  - Retinitis [Fatal]
  - Headache [Fatal]
  - Memory impairment [Fatal]
  - Amnesia [Fatal]
  - Weight decreased [Fatal]
  - Wheezing [Fatal]
  - Lupus-like syndrome [Fatal]
  - Hepatic cirrhosis [Fatal]
  - Type 2 diabetes mellitus [Fatal]
  - Joint dislocation [Fatal]
  - Vomiting [Fatal]
  - Disability [Fatal]
  - Laryngitis [Fatal]
  - Weight increased [Fatal]
  - Hypoaesthesia [Fatal]
  - Mobility decreased [Fatal]
  - Joint stiffness [Fatal]
  - Fibromyalgia [Fatal]
  - Joint range of motion decreased [Fatal]
  - Folliculitis [Fatal]
  - Arthritis [Fatal]
  - Hepatic enzyme increased [Fatal]
  - Asthma [Fatal]
  - Pain in extremity [Fatal]
  - Dizziness [Fatal]
  - Nasopharyngitis [Fatal]
  - Deep vein thrombosis postoperative [Fatal]
  - Dyspepsia [Fatal]
  - Oedema [Fatal]
  - Oedema peripheral [Fatal]
  - Arthralgia [Fatal]
  - Blood cholesterol increased [Fatal]
  - C-reactive protein increased [Fatal]
  - Fatigue [Fatal]
  - Joint swelling [Fatal]
  - Contusion [Fatal]
  - Pericarditis [Fatal]
  - Ear infection [Fatal]
  - Anti-cyclic citrullinated peptide antibody [Fatal]
  - Bronchitis [Fatal]
  - Rash [Fatal]
  - Blister [Fatal]
  - Insomnia [Fatal]
  - Confusional state [Fatal]
  - Osteoarthritis [Fatal]
  - Nausea [Fatal]
  - Crohn^s disease [Fatal]
  - Wound infection [Fatal]
  - Exostosis [Fatal]
  - Psoriasis [Fatal]
  - Spinal fusion surgery [Fatal]
  - Infusion related reaction [Fatal]
  - Dislocation of vertebra [Fatal]
  - Tachycardia [Fatal]
  - Wound [Fatal]
  - Glossodynia [Fatal]
  - Adjustment disorder with depressed mood [Fatal]
  - Pain [Fatal]
  - Muscle injury [Fatal]
  - Hip arthroplasty [Fatal]
  - Drug-induced liver injury [Fatal]
  - General physical health deterioration [Fatal]
  - Swelling [Fatal]
  - Road traffic accident [Fatal]
  - Chest pain [Fatal]
  - Diarrhoea [Fatal]
  - Decreased appetite [Fatal]
  - Hypercholesterolaemia [Fatal]
  - Sleep disorder due to a general medical condition [Fatal]
  - Bone erosion [Fatal]
  - Lupus vulgaris [Fatal]
  - Gait disturbance [Fatal]
  - Sleep disorder [Fatal]
  - Breast cancer stage III [Fatal]
  - Muscular weakness [Fatal]
  - Anxiety [Fatal]
  - Sciatica [Fatal]
  - Infection [Fatal]
  - Prescribed overdose [Fatal]
  - Sinusitis [Fatal]
  - Irritable bowel syndrome [Fatal]
  - Helicobacter infection [Fatal]
  - Musculoskeletal stiffness [Fatal]
  - Duodenal ulcer perforation [Fatal]
  - Hypertension [Fatal]
  - Rheumatic fever [Fatal]
  - Rheumatoid arthritis [Fatal]
  - Gait inability [Fatal]
  - Stomatitis [Fatal]
  - Seronegative arthritis [Fatal]
  - Spondylitis [Fatal]
  - Hand deformity [Fatal]
  - Prescribed underdose [Fatal]
  - Systemic lupus erythematosus [Fatal]
